FAERS Safety Report 5394538-0 (Version None)
Quarter: 2007Q3

REPORT INFORMATION
  Report Type: 
  Country: None (occurrence: None)
  Receive Date: 20070718
  Receipt Date: 20060613
  Transmission Date: 20080115
  Serious: Yes (Hospitalization)
  Sender: FDA-Public Use
  Company Number: 2006075621

PATIENT
  Age: 42 Year
  Sex: Female
  Weight: 90.7194 kg

DRUGS (2)
  1. CELEBREX [Suspect]
     Indication: MYALGIA
     Dosage: (1 IN 1 D)
  2. CELEBREX [Suspect]
     Indication: PAIN
     Dosage: (1 IN 1 D)

REACTIONS (5)
  - BALANCE DISORDER [None]
  - CHEST PAIN [None]
  - HAIR COLOUR CHANGES [None]
  - HEART RATE IRREGULAR [None]
  - TRANSIENT ISCHAEMIC ATTACK [None]
